FAERS Safety Report 8898314 (Version 1)
Quarter: 2012Q4

REPORT INFORMATION
  Report Type: 
  Country: US (occurrence: US)
  Receive Date: 20121109
  Receipt Date: 20121109
  Transmission Date: 20130627
  Serious: No
  Sender: FDA-Public Use
  Company Number: US-BIOGENIDEC-2012BI049955

PATIENT
  Sex: Male

DRUGS (1)
  1. AVONEX [Suspect]
     Indication: MULTIPLE SCLEROSIS
     Route: 030
     Dates: start: 20121012

REACTIONS (5)
  - Dry skin [Unknown]
  - Dysgeusia [Unknown]
  - Faeces discoloured [Unknown]
  - Lip swelling [Unknown]
  - Fatigue [Unknown]
